FAERS Safety Report 7362718-0 (Version None)
Quarter: 2011Q1

REPORT INFORMATION
  Report Type: 
  Country: None (occurrence: None)
  Receive Date: 20110321
  Receipt Date: 20110309
  Transmission Date: 20110831
  Serious: Yes (Hospitalization)
  Sender: FDA-Public Use
  Company Number: US-BIOGENIDEC-2011BI009096

PATIENT
  Age: 42 Year
  Sex: Male

DRUGS (3)
  1. AVONEX [Suspect]
     Route: 030
     Dates: start: 20040421, end: 20060501
  2. AVONEX [Suspect]
     Route: 030
     Dates: start: 20070806
  3. AVONEX [Suspect]
     Indication: MULTIPLE SCLEROSIS
     Route: 030
     Dates: start: 20011005, end: 20020201

REACTIONS (2)
  - CATHETER SITE HAEMORRHAGE [None]
  - CATHETER SITE PAIN [None]
